FAERS Safety Report 21216483 (Version 1)
Quarter: 2022Q3

REPORT INFORMATION
  Report Type: Spontaneous
  Country: DE (occurrence: DE)
  Receive Date: 20220816
  Receipt Date: 20220816
  Transmission Date: 20221027
  Serious: Yes (Hospitalization)
  Sender: FDA-Public Use
  Company Number: DE-JNJFOC-20220809132

PATIENT
  Age: 58 Year
  Sex: Male
  Weight: 86 kg

DRUGS (3)
  1. DEXAMETHASONE [Suspect]
     Active Substance: DEXAMETHASONE
     Indication: Plasma cell myeloma
     Dosage: LAST ADMINISTRATION BEFORE SAE WAS ON 22/JUL/2016, 30 DAYS AFTER THERAPY WAS ON 21/AUG/2016
     Route: 065
     Dates: start: 20160530
  2. VELCADE [Suspect]
     Active Substance: BORTEZOMIB
     Indication: Plasma cell myeloma
     Dosage: LAST ADMINISTRATION OF DRUG BEFORE SAE WAS ON 21/JUL/2016, 30 DAYS AFTER THERAPY WAS ON 20/AUG/2016
     Route: 058
     Dates: start: 20160530
  3. CYCLOPHOSPHAMIDE [Suspect]
     Active Substance: CYCLOPHOSPHAMIDE
     Indication: Plasma cell myeloma
     Dosage: LAST ADMINISTRATION BEFORE SAE WAS ON 11/JUL/-2016, 30 DAYS AFTER THERAPY WAS ON 10/AUG/2016
     Route: 065
     Dates: start: 20160530

REACTIONS (1)
  - Pneumonia [Recovered/Resolved]

NARRATIVE: CASE EVENT DATE: 20160725
